FAERS Safety Report 7337186-5 (Version None)
Quarter: 2011Q1

REPORT INFORMATION
  Report Type: 
  Country: None (occurrence: None)
  Receive Date: 20110308
  Receipt Date: 20110302
  Transmission Date: 20110831
  Serious: Yes (Other)
  Sender: FDA-Public Use
  Company Number: US-PFIZER INC-2010154657

PATIENT
  Sex: Male

DRUGS (2)
  1. CHANTIX [Suspect]
     Indication: SMOKING CESSATION THERAPY
     Dosage: UNK
     Dates: start: 20090126, end: 20090326
  2. SYNTHROID [Concomitant]
     Indication: HYPERTHYROIDISM
     Dosage: UNK
     Dates: start: 20050101

REACTIONS (5)
  - DEPRESSION [None]
  - ABNORMAL DREAMS [None]
  - SUICIDAL BEHAVIOUR [None]
  - ANXIETY [None]
  - AGITATION [None]
